FAERS Safety Report 11348901 (Version 1)
Quarter: 2015Q3

REPORT INFORMATION
  Report Type: Report from Study
  Country: US (occurrence: US)
  Receive Date: 20150807
  Receipt Date: 20150807
  Transmission Date: 20151125
  Serious: Yes (Other)
  Sender: FDA-Public Use
  Company Number: US-AMGEN-USASP2015077811

PATIENT
  Age: 49 Year
  Sex: Male

DRUGS (5)
  1. ENBREL [Suspect]
     Active Substance: ETANERCEPT
     Indication: RHEUMATOID ARTHRITIS
     Dosage: UNK UNK, UNK
     Route: 065
  2. MEDROL [Concomitant]
     Active Substance: METHYLPREDNISOLONE
     Dosage: 4 MG, UNK (3MG ON A BAD DAY AND 2MG ON A GOOD DAY)
  3. METHOTREXATE [Concomitant]
     Active Substance: METHOTREXATE
     Dosage: UNK, 6 PILLS
  4. ENBREL [Suspect]
     Active Substance: ETANERCEPT
     Indication: PSORIATIC ARTHROPATHY
  5. MELOXICAM. [Concomitant]
     Active Substance: MELOXICAM
     Dosage: 15 MG, UNK

REACTIONS (14)
  - Nerve stimulation test abnormal [Unknown]
  - Skin ulcer [Unknown]
  - Injury [Unknown]
  - Nerve injury [Unknown]
  - Drug effect decreased [Unknown]
  - Arthralgia [Unknown]
  - Ankle fracture [Unknown]
  - Liver function test abnormal [Unknown]
  - Eczema [Unknown]
  - Carpal tunnel syndrome [Unknown]
  - Exostosis [Unknown]
  - Cartilage injury [Unknown]
  - Ligament rupture [Unknown]
  - Mobility decreased [Unknown]
